FAERS Safety Report 19061030 (Version 1)
Quarter: 2021Q1

REPORT INFORMATION
  Report Type: Report from Study
  Country: US (occurrence: US)
  Receive Date: 20210325
  Receipt Date: 20210325
  Transmission Date: 20210420
  Serious: Yes (Hospitalization, Other)
  Sender: FDA-Public Use
  Company Number: US-JNJFOC-20210315497

PATIENT
  Age: 66 Year
  Sex: Female
  Weight: 95.5 kg

DRUGS (5)
  1. ELIQUIS [Concomitant]
     Active Substance: APIXABAN
  2. MACITENTAN [Suspect]
     Active Substance: MACITENTAN
     Indication: PULMONARY ARTERIAL HYPERTENSION
     Route: 048
  3. TYVASO [Concomitant]
     Active Substance: TREPROSTINIL
  4. AMLODIPINE [Concomitant]
     Active Substance: AMLODIPINE BESYLATE
  5. TADALAFIL. [Concomitant]
     Active Substance: TADALAFIL

REACTIONS (5)
  - Cardiac failure [Unknown]
  - Bladder disorder [Unknown]
  - Cardiac failure congestive [Unknown]
  - Asthenia [Unknown]
  - Renal failure [Unknown]

NARRATIVE: CASE EVENT DATE: 202102
